FAERS Safety Report 10686615 (Version 1)
Quarter: 2015Q1

REPORT INFORMATION
  Report Type: Spontaneous
  Country: NL (occurrence: NL)
  Receive Date: 20150101
  Receipt Date: 20150101
  Transmission Date: 20150720
  Serious: Yes (Other)
  Sender: FDA-Public Use
  Company Number: NL-ROCHE-1516575

PATIENT
  Age: 40 Year
  Sex: Female
  Weight: 69 kg

DRUGS (13)
  1. XOLAIR [Suspect]
     Active Substance: OMALIZUMAB
     Indication: ASTHMA
     Route: 065
     Dates: start: 20140620
  2. THEOLAIR [Concomitant]
     Active Substance: THEOPHYLLINE ANHYDROUS
  3. XOLAIR [Suspect]
     Active Substance: OMALIZUMAB
     Route: 065
     Dates: start: 20140801
  4. XOLAIR [Suspect]
     Active Substance: OMALIZUMAB
     Route: 065
     Dates: start: 20140820
  5. VANNAIR [Concomitant]
     Active Substance: BUDESONIDE\FORMOTEROL FUMARATE DIHYDRATE
  6. RHINOCORT [Concomitant]
     Active Substance: BUDESONIDE
  7. XOLAIR [Suspect]
     Active Substance: OMALIZUMAB
     Route: 065
     Dates: start: 20141015, end: 20141015
  8. LORATADINE. [Concomitant]
     Active Substance: LORATADINE
  9. DUOVENT [Concomitant]
     Active Substance: FENOTEROL HYDROBROMIDE
  10. XOLAIR [Suspect]
     Active Substance: OMALIZUMAB
     Route: 065
     Dates: start: 20140711
  11. PREDNISONE. [Concomitant]
     Active Substance: PREDNISONE
  12. PULMICORT TURBUHALER [Concomitant]
     Active Substance: BUDESONIDE
  13. VENTOLIN [Concomitant]
     Active Substance: ALBUTEROL SULFATE

REACTIONS (5)
  - Asthma [Unknown]
  - Dizziness [Unknown]
  - Pruritus [Unknown]
  - Somnolence [Unknown]
  - Rhinorrhoea [Unknown]

NARRATIVE: CASE EVENT DATE: 20140824
